FAERS Safety Report 7962658-X (Version None)
Quarter: 2011Q4

REPORT INFORMATION
  Report Type: 
  Country: None (occurrence: None)
  Receive Date: 20111207
  Receipt Date: 20111125
  Transmission Date: 20120403
  Serious: Yes (Life-Threatening)
  Sender: FDA-Public Use
  Company Number: FR-CELGENEUS-056-21880-11113783

PATIENT
  Sex: Female

DRUGS (12)
  1. ALKERAN [Suspect]
     Dosage: 16 MILLIGRAM
     Route: 048
     Dates: start: 20071001, end: 20080101
  2. REVLIMID [Suspect]
     Dosage: 25 MILLIGRAM
     Route: 048
     Dates: start: 20091212, end: 20101001
  3. DOXORUBICIN HCL [Suspect]
     Route: 041
     Dates: start: 20030201, end: 20030101
  4. DEXAMETHASONE [Suspect]
     Route: 048
     Dates: start: 20030201, end: 20030801
  5. ALKERAN [Suspect]
     Dosage: 200 MG/M2 DEPENDING ON CYCLE
     Route: 048
     Dates: start: 20031001, end: 20031001
  6. GRANOCYTE [Suspect]
     Dosage: 800 UG, DEPENDING ON CYCLE
     Route: 058
     Dates: start: 20110612, end: 20110618
  7. VINCRISTINE [Suspect]
     Route: 041
     Dates: start: 20030201, end: 20030801
  8. CYCLOPHOSPHAMIDE [Suspect]
     Dosage: 4UG/M2 DEPENDING ON CYLCE
     Route: 041
     Dates: start: 20030527, end: 20030527
  9. DEXAMETHASONE [Suspect]
     Dosage: DEPENDING ON CYCLE
     Route: 048
     Dates: start: 20091212, end: 20101001
  10. VELCADE [Suspect]
     Dosage: DEPENDING ON CYCLE
     Route: 041
     Dates: start: 20071001, end: 20080101
  11. MOZOBIL [Suspect]
     Dosage: DEPENDING ON CYCLE
     Route: 058
     Dates: start: 20110613, end: 20110616
  12. PREDNISOLONE [Suspect]
     Dosage: 170 MILLIGRAM
     Route: 048
     Dates: start: 20071001, end: 20080101

REACTIONS (1)
  - MYELODYSPLASTIC SYNDROME [None]
